FAERS Safety Report 22153076 (Version 1)
Quarter: 2023Q1

REPORT INFORMATION
  Report Type: Spontaneous
  Country: US (occurrence: None)
  Receive Date: 20230329
  Receipt Date: 20230329
  Transmission Date: 20230417
  Serious: No
  Sender: FDA-Public Use
  Company Number: None

PATIENT
  Age: 70 Year
  Sex: Female

DRUGS (14)
  1. CAPECITABINE [Suspect]
     Active Substance: CAPECITABINE
     Indication: Breast cancer female
     Dosage: FREQUENCY : TWICE A DAY;?
     Route: 048
     Dates: start: 202010
  2. CAPECITABINE [Suspect]
     Active Substance: CAPECITABINE
     Indication: Breast cancer female
     Dosage: FREQUENCY : TWICE A DAY;?
     Route: 048
  3. AMOXICILLIN [Concomitant]
     Active Substance: AMOXICILLIN
  4. CLONIDINE [Concomitant]
     Active Substance: CLONIDINE
  5. VITAMIN B12 [Concomitant]
     Active Substance: CYANOCOBALAMIN
  6. IBRANCE [Concomitant]
     Active Substance: PALBOCICLIB
  7. LETROZOLE [Concomitant]
     Active Substance: LETROZOLE
  8. LEVOCETIRIZINE [Concomitant]
     Active Substance: LEVOCETIRIZINE
  9. LYRICA [Concomitant]
     Active Substance: PREGABALIN
  10. METOPROLOL [Concomitant]
     Active Substance: METOPROLOL
  11. ONDANSETRON [Concomitant]
     Active Substance: ONDANSETRON
  12. SPIRIVA [Concomitant]
     Active Substance: TIOTROPIUM BROMIDE MONOHYDRATE
  13. VITAMIN D [Concomitant]
     Active Substance: VITAMIN D NOS
  14. XGEVA [Concomitant]
     Active Substance: DENOSUMAB

REACTIONS (1)
  - Hypotension [None]
